FAERS Safety Report 9115482 (Version 6)
Quarter: 2015Q2

REPORT INFORMATION
  Report Type: Spontaneous
  Country: US (occurrence: US)
  Receive Date: 20130225
  Receipt Date: 20150522
  Transmission Date: 20150821
  Serious: Yes (Hospitalization)
  Sender: FDA-Public Use
  Company Number: US-BAYER-2013-021037

PATIENT
  Age: 25 Year
  Sex: Female
  Weight: 68.27 kg

DRUGS (3)
  1. DILANTIN [Concomitant]
     Active Substance: PHENYTOIN
  2. MIRENA [Suspect]
     Active Substance: LEVONORGESTREL
     Indication: CONTRACEPTION
     Dosage: 20 MCG/24HR, CONT
     Route: 015
     Dates: start: 20080725, end: 20120316
  3. VICODIN [Concomitant]
     Active Substance: ACETAMINOPHEN\HYDROCODONE BITARTRATE
     Indication: PAIN

REACTIONS (12)
  - Pain [None]
  - Depression [None]
  - General physical health deterioration [None]
  - Anxiety [None]
  - Anger [None]
  - Uterine perforation [None]
  - Pregnancy with contraceptive device [None]
  - Depressed mood [None]
  - Injury [None]
  - Emotional distress [None]
  - Anhedonia [None]
  - Drug ineffective [None]

NARRATIVE: CASE EVENT DATE: 201110
